FAERS Safety Report 4989423-X (Version None)
Quarter: 2006Q2

REPORT INFORMATION
  Report Type: 
  Country: None (occurrence: None)
  Receive Date: 20060502
  Receipt Date: 20050513
  Transmission Date: 20061013
  Serious: Yes (Hospitalization, Disabling)
  Sender: FDA-Public Use
  Company Number: US-MERCK-0505USA01810

PATIENT
  Age: 63 Year
  Sex: Female
  Weight: 62 kg

DRUGS (10)
  1. VIOXX [Suspect]
     Indication: ARTERIAL DISORDER
     Route: 048
     Dates: start: 20010601, end: 20020401
  2. ESTROPIPATE [Concomitant]
     Route: 065
  3. TEMAZEPAM [Concomitant]
     Route: 065
  4. LEVOXYL [Concomitant]
     Route: 065
  5. DOCUSATE SODIUM [Concomitant]
     Route: 065
  6. ECOTRIN [Concomitant]
     Route: 065
  7. CYCLOBENZAPRINE(WEST POINT PHARMA) [Concomitant]
     Route: 065
  8. FAMOTIDINE [Concomitant]
     Route: 065
  9. PREVACID [Concomitant]
     Route: 065
  10. METOCLOPRAMIDE [Concomitant]
     Route: 065

REACTIONS (18)
  - ACUTE MYOCARDIAL INFARCTION [None]
  - ANGINA PECTORIS [None]
  - ANTERIOR CHAMBER DISORDER [None]
  - BACK PAIN [None]
  - BRONCHITIS [None]
  - CARDIOMEGALY [None]
  - CHEST PAIN [None]
  - CHOLELITHIASIS [None]
  - CHRONIC OBSTRUCTIVE PULMONARY DISEASE [None]
  - CORONARY ARTERY DISEASE [None]
  - DISABILITY [None]
  - DIZZINESS [None]
  - DYSPHASIA [None]
  - HIATUS HERNIA [None]
  - HYPERTENSION [None]
  - INCISION SITE COMPLICATION [None]
  - POSTINFARCTION ANGINA [None]
  - TREMOR [None]
